FAERS Safety Report 13210828 (Version 1)
Quarter: 2017Q1

REPORT INFORMATION
  Report Type: Spontaneous
  Country: US (occurrence: US)
  Receive Date: 20170209
  Receipt Date: 20170209
  Transmission Date: 20170428
  Serious: No
  Sender: FDA-Public Use
  Company Number: None

PATIENT
  Age: 50 Year
  Sex: Male

DRUGS (2)
  1. GLEEVEC [Suspect]
     Active Substance: IMATINIB MESYLATE
     Indication: SOFT TISSUE SARCOMA
  2. GLEEVEC [Suspect]
     Active Substance: IMATINIB MESYLATE
     Indication: CONNECTIVE TISSUE NEOPLASM

REACTIONS (2)
  - Diarrhoea [None]
  - Product quality issue [None]

NARRATIVE: CASE EVENT DATE: 20170209
